FAERS Safety Report 7970813-8 (Version None)
Quarter: 2011Q4

REPORT INFORMATION
  Report Type: 
  Country: None (occurrence: None)
  Receive Date: 20111212
  Receipt Date: 20111205
  Transmission Date: 20120403
  Serious: No
  Sender: FDA-Public Use
  Company Number: JP-JNJFOC-20110902652

PATIENT
  Sex: Female

DRUGS (8)
  1. TAMBOCOR [Concomitant]
     Indication: PROCEDURAL PAIN
     Route: 048
     Dates: end: 20100709
  2. PROCHLORPERAZINE [Concomitant]
     Indication: PROPHYLAXIS
     Route: 048
     Dates: start: 20100514, end: 20100709
  3. FENTANYL-100 [Suspect]
     Indication: PROCEDURAL PAIN
     Route: 062
     Dates: start: 20100514, end: 20100611
  4. CARBOCAIN [Concomitant]
     Indication: PAIN
     Route: 065
     Dates: start: 20100519
  5. MAGNESIUM OXIDE [Concomitant]
     Indication: PROPHYLAXIS
     Route: 048
     Dates: start: 20100514, end: 20100709
  6. PURSENNID [Concomitant]
     Indication: PROPHYLAXIS
     Route: 048
     Dates: start: 20100514, end: 20100709
  7. NEUROTROPIN [Concomitant]
     Indication: PROCEDURAL PAIN
     Route: 048
  8. FENTANYL-100 [Suspect]
     Route: 062
     Dates: start: 20100611, end: 20100806

REACTIONS (4)
  - WRONG TECHNIQUE IN DRUG USAGE PROCESS [None]
  - NAUSEA [None]
  - VOMITING [None]
  - DRUG INTOLERANCE [None]
